FAERS Safety Report 9008723 (Version 1)
Quarter: 2013Q1

REPORT INFORMATION
  Report Type: Spontaneous
  Country: NO (occurrence: NO)
  Receive Date: 20130111
  Receipt Date: 20130111
  Transmission Date: 20140127
  Serious: Yes (Death, Hospitalization, Other)
  Sender: FDA-Public Use
  Company Number: PHHY2013NO001934

PATIENT
  Age: 41 Year
  Sex: Female

DRUGS (7)
  1. METFORMIN [Suspect]
     Indication: TYPE 2 DIABETES MELLITUS
     Dosage: 1.5 G, BID
     Route: 048
     Dates: start: 1990
  2. LISINOPRIL+HYDROCHLOROTHIAZIDE [Suspect]
     Indication: HYPERTENSION
     Dosage: 1 DF, UNK
     Route: 048
  3. AMLODIPINE [Concomitant]
     Indication: HYPERTENSION
     Dosage: 5 MG, QD
     Route: 048
  4. SELO-ZOK [Concomitant]
     Indication: HYPERTENSION
     Dosage: 100 MG, QD
     Route: 048
  5. NOVOMIX 30 [Concomitant]
     Indication: TYPE 2 DIABETES MELLITUS
     Dosage: 30-35 IE EVERY MORNING
     Route: 058
  6. SIMVASTATIN [Concomitant]
     Indication: HYPERCHOLESTEROLAEMIA
     Dosage: 20 MG, QD
  7. INSULATARD [Concomitant]
     Indication: TYPE 2 DIABETES MELLITUS
     Dosage: 40-45 IE EVERY EVENING
     Route: 058

REACTIONS (12)
  - Lactic acidosis [Fatal]
  - Vomiting [Fatal]
  - Hypotension [Fatal]
  - General physical health deterioration [Fatal]
  - Loss of consciousness [Unknown]
  - Mydriasis [Unknown]
  - Dehydration [Unknown]
  - Blood glucose increased [Unknown]
  - C-reactive protein increased [Unknown]
  - Platelet count decreased [Unknown]
  - Blood creatinine increased [Unknown]
  - Blood urea increased [Unknown]
